FAERS Safety Report 15250813 (Version 4)
Quarter: 2019Q1

REPORT INFORMATION
  Report Type: Spontaneous
  Country: NL (occurrence: NL)
  Receive Date: 20180807
  Receipt Date: 20190204
  Transmission Date: 20190417
  Serious: Yes (Hospitalization, Other)
  Sender: FDA-Public Use
  Company Number: PHHY2018NL063467

PATIENT
  Age: 70 Year
  Sex: Female

DRUGS (20)
  1. HALOPERIDOL. [Interacting]
     Active Substance: HALOPERIDOL
     Indication: DELIRIUM
     Dosage: 3.5 MG, QD
     Route: 048
  2. CLOMIPRAMINE HYDROCHLORIDE. [Interacting]
     Active Substance: CLOMIPRAMINE HYDROCHLORIDE
     Indication: OBSESSIVE-COMPULSIVE DISORDER
     Dosage: 100 MG, QD USED ATLEAST FOR 10 YEARS
     Route: 065
  3. OMEPRAZOLE. [Concomitant]
     Active Substance: OMEPRAZOLE
     Indication: PRODUCT USED FOR UNKNOWN INDICATION
     Dosage: UNK
     Route: 065
  4. FLUVOXAMINE [Interacting]
     Active Substance: FLUVOXAMINE
     Indication: OBSESSIVE-COMPULSIVE DISORDER
     Dosage: 100 MG, QD
     Route: 065
  5. HALOPERIDOL. [Interacting]
     Active Substance: HALOPERIDOL
     Indication: DEPRESSION
  6. FLUVOXAMINE [Interacting]
     Active Substance: FLUVOXAMINE
     Indication: DEPRESSION
  7. ZOLPIDEM [Concomitant]
     Active Substance: ZOLPIDEM\ZOLPIDEM TARTRATE
     Indication: PRODUCT USED FOR UNKNOWN INDICATION
     Dosage: UNK
     Route: 065
  8. CLOMIPRAMINE HYDROCHLORIDE. [Interacting]
     Active Substance: CLOMIPRAMINE HYDROCHLORIDE
     Indication: ANXIETY
  9. FLUVOXAMINE [Interacting]
     Active Substance: FLUVOXAMINE
     Indication: ANXIETY
  10. CEFAZOLIN [Concomitant]
     Active Substance: CEFAZOLIN
     Indication: EVIDENCE BASED TREATMENT
     Dosage: UNK
     Route: 065
  11. PRAVASTATIN. [Concomitant]
     Active Substance: PRAVASTATIN
     Indication: PRODUCT USED FOR UNKNOWN INDICATION
     Dosage: UNK
     Route: 065
  12. AMLODIPINE [Concomitant]
     Active Substance: AMLODIPINE BESYLATE
     Indication: PRODUCT USED FOR UNKNOWN INDICATION
     Route: 065
  13. HALOPERIDOL. [Interacting]
     Active Substance: HALOPERIDOL
     Indication: OBSESSIVE-COMPULSIVE DISORDER
  14. CLOMIPRAMINE HYDROCHLORIDE. [Interacting]
     Active Substance: CLOMIPRAMINE HYDROCHLORIDE
     Indication: DEPRESSION
     Dosage: 50 MG, QD
     Route: 065
  15. LISINOPRIL. [Concomitant]
     Active Substance: LISINOPRIL
     Indication: PRODUCT USED FOR UNKNOWN INDICATION
     Dosage: UNK
     Route: 065
  16. ACETYLSALICYLIC ACID [Concomitant]
     Active Substance: ASPIRIN
     Indication: PRODUCT USED FOR UNKNOWN INDICATION
     Route: 065
  17. HALOPERIDOL. [Suspect]
     Active Substance: HALOPERIDOL
     Indication: ANXIETY
     Dosage: 3 MG, QD
     Route: 048
  18. METOPROLOL. [Concomitant]
     Active Substance: METOPROLOL
     Indication: PRODUCT USED FOR UNKNOWN INDICATION
     Dosage: UNK
     Route: 065
  19. HYDROCHLOROTHIAZIDE. [Concomitant]
     Active Substance: HYDROCHLOROTHIAZIDE
     Indication: PRODUCT USED FOR UNKNOWN INDICATION
     Dosage: UNK
     Route: 065
  20. MELATONIN [Concomitant]
     Active Substance: MELATONIN
     Indication: PRODUCT USED FOR UNKNOWN INDICATION
     Dosage: UNK
     Route: 065

REACTIONS (13)
  - Erythema [Unknown]
  - Postoperative wound infection [Unknown]
  - Fall [Unknown]
  - Therapeutic response decreased [Unknown]
  - Drug interaction [Recovered/Resolved]
  - Drug level increased [Recovered/Resolved]
  - Delirium [Unknown]
  - Beta haemolytic streptococcal infection [Unknown]
  - Confusional state [Recovering/Resolving]
  - Agitation [Recovering/Resolving]
  - Toxicity to various agents [Recovering/Resolving]
  - Drug level above therapeutic [Recovering/Resolving]
  - Wound secretion [Unknown]
